FAERS Safety Report 8906385 (Version 1)
Quarter: 2012Q4

REPORT INFORMATION
  Report Type: Spontaneous
  Country: US (occurrence: None)
  Receive Date: 20121109
  Receipt Date: 20121109
  Transmission Date: 20130627
  Serious: Yes (Other)
  Sender: FDA-Public Use
  Company Number: None

PATIENT

DRUGS (1)
  1. PHENYTOIN EXTENDED TARO MFG [Suspect]
     Indication: SEIZURE
     Route: 048
     Dates: start: 20120906, end: 20121012

REACTIONS (3)
  - Headache [None]
  - Gait disturbance [None]
  - Hypokinesia [None]
